APPROVED DRUG PRODUCT: MEMANTINE HYDROCHLORIDE
Active Ingredient: MEMANTINE HYDROCHLORIDE
Strength: 10MG
Dosage Form/Route: TABLET;ORAL
Application: A090073 | Product #002
Applicant: POINTVIEW HOLDINGS LLC
Approved: Sep 4, 2015 | RLD: No | RS: No | Type: DISCN